FAERS Safety Report 7302020-6 (Version None)
Quarter: 2011Q1

REPORT INFORMATION
  Report Type: 
  Country: None (occurrence: None)
  Receive Date: 20110218
  Receipt Date: 20110215
  Transmission Date: 20110831
  Serious: Yes (Other)
  Sender: FDA-Public Use
  Company Number: SE-PFIZER INC-2011033062

PATIENT
  Age: 81 Year
  Sex: Male

DRUGS (8)
  1. DETRUSITOL SR [Suspect]
     Dosage: 4 MG, UNK
     Dates: start: 20010101
  2. FURIX [Concomitant]
     Dosage: 60 MG, UNK
  3. SELOKEN ZOC [Concomitant]
     Dosage: 100 MG, UNK
  4. IMOVANE [Concomitant]
     Dosage: UNK
  5. XATRAL OD [Concomitant]
     Dosage: 10 MG, UNK
  6. MOVICOL [Concomitant]
     Dosage: UNK
  7. PLENDIL [Concomitant]
     Dosage: 5 MG, UNK
  8. CARBAMIDE PRODUCTS [Concomitant]
     Dosage: UNK

REACTIONS (3)
  - ONYCHOMADESIS [None]
  - MONOPLEGIA [None]
  - JOINT SWELLING [None]
